FAERS Safety Report 9184311 (Version 1)
Quarter: 2012Q4

REPORT INFORMATION
  Report Type: 
  Country: US (occurrence: US)
  Receive Date: 20121031
  Receipt Date: 20121031
  Transmission Date: 20130627
  Serious: Yes (Hospitalization, Other)
  Sender: FDA-Public Use
  Company Number: US-ELI_LILLY_AND_COMPANY-US201210007993

PATIENT
  Sex: Female

DRUGS (7)
  1. HUMULIN 30% REGULAR, 70% NPH [Suspect]
     Indication: TYPE 2 DIABETES MELLITUS
     Dosage: 9 u, each morning
  2. HUMULIN 30% REGULAR, 70% NPH [Suspect]
     Dosage: 2 u, prn
  3. HUMULIN 30% REGULAR, 70% NPH [Suspect]
     Dosage: 3 u, each evening
  4. HUMULIN 30% REGULAR, 70% NPH [Suspect]
     Indication: TYPE 2 DIABETES MELLITUS
     Dosage: 9 u, each morning
  5. HUMULIN 30% REGULAR, 70% NPH [Suspect]
     Dosage: 2 u, prn
  6. HUMULIN 30% REGULAR, 70% NPH [Suspect]
     Dosage: 3 u, each evening
     Dates: start: 20121023
  7. INSULIN [Concomitant]
     Dosage: UNK, unknown

REACTIONS (9)
  - Cerebrovascular accident [Recovered/Resolved with Sequelae]
  - Lower limb fracture [Unknown]
  - Monoparesis [Unknown]
  - Knee arthroplasty [Unknown]
  - Dementia Alzheimer^s type [Not Recovered/Not Resolved]
  - Blood glucose increased [Unknown]
  - Blood glucose decreased [Unknown]
  - Speech disorder [Not Recovered/Not Resolved]
  - Fall [Recovered/Resolved]
